FAERS Safety Report 6028311-7 (Version None)
Quarter: 2009Q1

REPORT INFORMATION
  Report Type: 
  Country: None (occurrence: None)
  Receive Date: 20090106
  Receipt Date: 20081224
  Transmission Date: 20090719
  Serious: Yes (Hospitalization, Other)
  Sender: FDA-Public Use
  Company Number: US-PFIZER INC-2008093904

PATIENT
  Sex: Male
  Weight: 88.636 kg

DRUGS (5)
  1. LYRICA [Suspect]
     Indication: NEUROPATHY PERIPHERAL
     Dates: start: 20081002, end: 20081006
  2. ALL OTHER THERAPEUTIC PRODUCTS [Suspect]
  3. ADDERALL 10 [Concomitant]
  4. LORAZEPAM [Concomitant]
  5. CARBIDOPA AND LEVODOPA [Concomitant]

REACTIONS (28)
  - ADVERSE DRUG REACTION [None]
  - ARRHYTHMIA [None]
  - BLOOD PRESSURE SYSTOLIC INCREASED [None]
  - CARDIAC VALVE DISEASE [None]
  - CONFUSIONAL STATE [None]
  - DRUG HYPERSENSITIVITY [None]
  - DYSPHONIA [None]
  - DYSPNOEA [None]
  - EXPRESSIVE LANGUAGE DISORDER [None]
  - EXTRAPYRAMIDAL DISORDER [None]
  - EYE MOVEMENT DISORDER [None]
  - HEADACHE [None]
  - HEART RATE INCREASED [None]
  - HEPATO-LENTICULAR DEGENERATION [None]
  - HYPERSENSITIVITY [None]
  - LEFT ATRIAL DILATATION [None]
  - MALAISE [None]
  - MENTAL DISORDER [None]
  - MIGRAINE [None]
  - NAUSEA [None]
  - PARALYSIS [None]
  - RESTLESSNESS [None]
  - SLEEP APNOEA SYNDROME [None]
  - TENDON INJURY [None]
  - TONGUE OEDEMA [None]
  - TREATMENT NONCOMPLIANCE [None]
  - VERTIGO [None]
  - WEIGHT INCREASED [None]
